FAERS Safety Report 9227316 (Version 1)
Quarter: 2013Q2

REPORT INFORMATION
  Report Type: Spontaneous
  Country: JP (occurrence: None)
  Receive Date: 20130410
  Receipt Date: 20130410
  Transmission Date: 20140414
  Serious: Yes (Death, Life-Threatening, Hospitalization, Other)
  Sender: FDA-Public Use
  Company Number: SYM-2013-02490

PATIENT
  Age: 41 Year
  Sex: Female

DRUGS (5)
  1. ACYCLOVIR (ACICLOVIR) (ACICLOVIR) [Suspect]
     Indication: HERPES ZOSTER
     Route: 048
     Dates: start: 20111107, end: 20120516
  2. BENDAMUSTINE (BENDAMUSTINE) (BENDAMUSTINE) [Suspect]
     Indication: LYMPHOMA
     Dates: start: 20120727, end: 20120730
  3. CO-TRIMOXAZOLE [Suspect]
     Indication: PRODUCT USED FOR UNKNOWN INDICATION
  4. BROTIZOLAM [Suspect]
     Indication: INSOMNIA
     Route: 048
     Dates: start: 20110822
  5. OFATUMUMAB [Suspect]
     Indication: LYMPHOMA
     Route: 042
     Dates: start: 20111012, end: 20120316

REACTIONS (40)
  - Toxic epidermal necrolysis [None]
  - Stress [None]
  - Pleural effusion [None]
  - Erythema multiforme [None]
  - Glossitis [None]
  - Pancytopenia [None]
  - Activities of daily living impaired [None]
  - Pulmonary embolism [None]
  - Deep vein thrombosis [None]
  - Effusion [None]
  - Corynebacterium test positive [None]
  - Pseudomonas test positive [None]
  - Pain [None]
  - Presyncope [None]
  - Paronychia [None]
  - Vaginal inflammation [None]
  - Stomatitis [None]
  - Device related infection [None]
  - Staphylococcus test positive [None]
  - Serratia test positive [None]
  - Skin haemorrhage [None]
  - Disseminated intravascular coagulation [None]
  - Muscle haemorrhage [None]
  - Cardio-respiratory arrest [None]
  - Septic shock [None]
  - Systemic inflammatory response syndrome [None]
  - Infection susceptibility increased [None]
  - Atelectasis [None]
  - Mediastinum neoplasm [None]
  - Condition aggravated [None]
  - Renal impairment [None]
  - Pulmonary congestion [None]
  - Restlessness [None]
  - Delirium [None]
  - Anxiety [None]
  - Depressed level of consciousness [None]
  - Respiratory failure [None]
  - Pneumonia [None]
  - Paraneoplastic pemphigus [None]
  - Candida test positive [None]
